FAERS Safety Report 19722107 (Version 2)
Quarter: 2021Q3

REPORT INFORMATION
  Report Type: Spontaneous
  Country: US (occurrence: US)
  Receive Date: 20210819
  Receipt Date: 20210830
  Transmission Date: 20211014
  Serious: Yes (Death, Other)
  Sender: FDA-Public Use
  Company Number: US-009507513-2108USA003411

PATIENT
  Age: 7 Decade

DRUGS (1)
  1. ZINPLAVA [Suspect]
     Active Substance: BEZLOTOXUMAB
     Dosage: UNK

REACTIONS (2)
  - Cardio-respiratory arrest [Unknown]
  - Pulmonary embolism [Fatal]
